FAERS Safety Report 8812145 (Version 4)
Quarter: 2014Q1

REPORT INFORMATION
  Report Type: Spontaneous
  Country: FR (occurrence: FR)
  Receive Date: 20120927
  Receipt Date: 20140122
  Transmission Date: 20141002
  Serious: Yes (Hospitalization)
  Sender: FDA-Public Use
  Company Number: FR-UCBSA-067237

PATIENT
  Age: 9 Year
  Sex: Male

DRUGS (6)
  1. KEPPRA [Suspect]
     Indication: CONVULSION
     Route: 048
     Dates: start: 20120821, end: 20120907
  2. FLAGYL [Suspect]
     Route: 042
     Dates: start: 20120817, end: 20120908
  3. VENOFER [Suspect]
     Route: 042
     Dates: start: 20120831, end: 20120831
  4. CLAFORAN [Concomitant]
     Dosage: 1700 MG DAILY
     Route: 042
     Dates: start: 20120817
  5. DUPHALAC [Concomitant]
  6. PERFALGAN [Concomitant]

REACTIONS (10)
  - Drug reaction with eosinophilia and systemic symptoms [Recovered/Resolved]
  - Eosinophilia [Recovered/Resolved]
  - Alanine aminotransferase increased [Recovered/Resolved]
  - Lipase increased [Recovered/Resolved]
  - Neutropenia [Recovered/Resolved]
  - General physical health deterioration [Recovered/Resolved]
  - Vomiting [Recovered/Resolved]
  - Pyrexia [Recovered/Resolved]
  - Anaemia [Recovered/Resolved]
  - Platelet count decreased [Recovered/Resolved]
